FAERS Safety Report 7280790-3 (Version None)
Quarter: 2011Q1

REPORT INFORMATION
  Report Type: 
  Country: None (occurrence: None)
  Receive Date: 20110208
  Receipt Date: 20110126
  Transmission Date: 20110831
  Serious: Yes (Hospitalization)
  Sender: FDA-Public Use
  Company Number: US-ROCHE-756565

PATIENT
  Sex: Male
  Weight: 90.5 kg

DRUGS (12)
  1. KYTRIL [Concomitant]
     Route: 048
  2. LOPERAMIDE [Concomitant]
     Dosage: AS PER NEEDED
     Route: 048
  3. DECADRON [Concomitant]
     Route: 048
     Dates: start: 20090909
  4. CALCIUM CARBONATE [Concomitant]
     Dosage: FORM: CHEWABLE
     Route: 048
  5. KEPPRA XR [Concomitant]
     Route: 048
     Dates: start: 20081205
  6. PRILOSEC [Concomitant]
     Route: 048
     Dates: start: 20090423
  7. VITAMINE D [Concomitant]
     Dosage: VITAMIN D CHOLECALCIFEROL
     Route: 048
  8. TOPAMAC [Concomitant]
     Route: 048
     Dates: start: 20090423
  9. DOCUSATE SODIUM/SENNOSIDES [Concomitant]
     Route: 048
  10. BEVACIZUMAB [Suspect]
     Indication: GLIOBLASTOMA
     Dosage: DATE OF LAST DOSE PRIOR TO SAE: 25 NOVEMBER 2009 TOTAL DOSE: 888 MG
     Route: 042
     Dates: start: 20090701
  11. LEXAPRO [Concomitant]
     Route: 048
     Dates: start: 20090909
  12. TANDUTINIB [Suspect]
     Indication: GLIOBLASTOMA
     Dosage: DATE OF LAST DOSE PRIOR TO SAE: 04 DECEMBER 2009
     Route: 048
     Dates: start: 20090701, end: 20091028

REACTIONS (1)
  - CONVULSION [None]
